FAERS Safety Report 23207613 (Version 1)
Quarter: 2023Q4

REPORT INFORMATION
  Report Type: Spontaneous
  Country: IT (occurrence: IT)
  Receive Date: 20231120
  Receipt Date: 20231120
  Transmission Date: 20240110
  Serious: Yes (Disabling)
  Sender: FDA-Public Use
  Company Number: None

PATIENT
  Age: 55 Year
  Sex: Male
  Weight: 56 kg

DRUGS (8)
  1. RISPERDAL [Suspect]
     Active Substance: RISPERIDONE
     Indication: Psychomotor hyperactivity
     Dosage: 0,5 G + 1 G
     Route: 048
     Dates: start: 20230104, end: 20231013
  2. TALOFEN [Suspect]
     Active Substance: PROMAZINE HYDROCHLORIDE
     Indication: Psychomotor hyperactivity
     Dosage: 15-20 DROPS THREE TIMES A DAY, THEN REDUCED TO 5/10 DROPS PER DAY
     Route: 048
     Dates: start: 20220729, end: 20230902
  3. OLANZAPINE [Suspect]
     Active Substance: OLANZAPINE
     Indication: Psychomotor hyperactivity
     Dosage: 5 MG X 2 VOLTE/DIE
     Route: 048
     Dates: start: 20220729, end: 20220917
  4. TRAZODONE HYDROCHLORIDE [Concomitant]
     Active Substance: TRAZODONE HYDROCHLORIDE
  5. VALIUM [Concomitant]
     Active Substance: DIAZEPAM
  6. HALOPERIDOL [Concomitant]
     Active Substance: HALOPERIDOL
  7. RIVOTRIL [Concomitant]
     Active Substance: CLONAZEPAM
  8. VALPROIC ACID [Concomitant]
     Active Substance: VALPROIC ACID

REACTIONS (1)
  - Disability [Not Recovered/Not Resolved]
